FAERS Safety Report 16942894 (Version 1)
Quarter: 2019Q4

REPORT INFORMATION
  Report Type: Spontaneous
  Country: TW (occurrence: TW)
  Receive Date: 20191021
  Receipt Date: 20191021
  Transmission Date: 20200122
  Serious: Yes (Hospitalization)
  Sender: FDA-Public Use
  Company Number: TW-ALLERGAN-1941722US

PATIENT

DRUGS (3)
  1. BOTOX [Suspect]
     Active Substance: ONABOTULINUMTOXINA
     Dosage: 75 UNITS, SINGLE
     Route: 065
     Dates: start: 20191009, end: 20191009
  2. BOTOX [Suspect]
     Active Substance: ONABOTULINUMTOXINA
     Indication: PRODUCT USED FOR UNKNOWN INDICATION
     Dosage: 50 UNITS, SINGLE
     Route: 065
     Dates: start: 20191009, end: 20191009
  3. BOTOX [Suspect]
     Active Substance: ONABOTULINUMTOXINA
     Dosage: 75 UNITS, SINGLE
     Route: 065
     Dates: start: 20191009, end: 20191009

REACTIONS (2)
  - Shock [Unknown]
  - Cardiac disorder [Unknown]
